FAERS Safety Report 10184800 (Version 1)
Quarter: 2014Q2

REPORT INFORMATION
  Report Type: Spontaneous
  Country: IT (occurrence: None)
  Receive Date: 20140519
  Receipt Date: 20140519
  Transmission Date: 20141212
  Serious: Yes (Hospitalization)
  Sender: FDA-Public Use
  Company Number: AUR-APL-2014-05699

PATIENT
  Age: 82 Year
  Sex: Male

DRUGS (7)
  1. METFORMIN [Suspect]
     Indication: DIABETES MELLITUS
     Route: 048
     Dates: start: 20140101, end: 20140225
  2. BRILIQUE (TICAGRELOR) [Concomitant]
  3. PANTORC (PANTOPRAZOLE SODIUM SESQUIHYDRATE) [Concomitant]
  4. DEPAKIN CHRONO (VALPROATE SODIUM) [Concomitant]
  5. AMIODARONE HYDROCHLORIDE (AMIODARONE HYDROCHLORIDE) [Concomitant]
  6. RAMIPRIL (RAMIPRIL) [Concomitant]
  7. BISOPROLOL FUMARATE (BISOPROLOL FUMARATE) [Concomitant]

REACTIONS (4)
  - Metabolic acidosis [None]
  - Blood glucose decreased [None]
  - Blood creatinine increased [None]
  - Blood potassium increased [None]
